FAERS Safety Report 7500800-5 (Version None)
Quarter: 2011Q2

REPORT INFORMATION
  Report Type: 
  Country: None (occurrence: None)
  Receive Date: 20110524
  Receipt Date: 20110512
  Transmission Date: 20111010
  Serious: Yes (Death, Hospitalization, Congenital Anomaly)
  Sender: FDA-Public Use
  Company Number: A0702274A

PATIENT
  Sex: Female
  Weight: 0.4 kg

DRUGS (9)
  1. PAXIL CR [Suspect]
     Indication: ANXIETY
     Route: 064
     Dates: start: 20030701, end: 20031201
  2. PRENATAL VITAMINS [Concomitant]
     Indication: PREGNANCY
     Route: 064
  3. PREVACID [Concomitant]
  4. ALPRAZOLAM [Concomitant]
     Route: 064
  5. CLINDAMYCIN [Concomitant]
     Route: 064
  6. FERTILITY TREATMENT [Concomitant]
     Route: 064
  7. CLOBETASOL PROPIONATE [Concomitant]
     Route: 064
  8. MEDROL [Concomitant]
     Route: 064
  9. DOXYCYCLINE [Concomitant]
     Route: 064

REACTIONS (19)
  - DRUG EXPOSURE DURING PREGNANCY [None]
  - BRONCHOPULMONARY DYSPLASIA [None]
  - RESPIRATORY DISTRESS [None]
  - APNOEA [None]
  - BONE DISORDER [None]
  - PREMATURE BABY [None]
  - PERSISTENT FOETAL CIRCULATION [None]
  - ATRIAL SEPTAL DEFECT [None]
  - ADJUSTMENT DISORDER [None]
  - LUNG DISORDER [None]
  - BRADYCARDIA [None]
  - CARDIAC FAILURE CONGESTIVE [None]
  - DEVELOPMENTAL DELAY [None]
  - EATING DISORDER [None]
  - PULMONARY VENO-OCCLUSIVE DISEASE [None]
  - SMALL FOR DATES BABY [None]
  - RIGHT VENTRICULAR FAILURE [None]
  - RESPIRATORY FAILURE [None]
  - RETINOPATHY OF PREMATURITY [None]
